FAERS Safety Report 17318450 (Version 3)
Quarter: 2022Q3

REPORT INFORMATION
  Report Type: Spontaneous
  Country: US (occurrence: US)
  Receive Date: 20200124
  Receipt Date: 20220726
  Transmission Date: 20221027
  Serious: Yes (Hospitalization)
  Sender: FDA-Public Use
  Company Number: US-VERTEX PHARMACEUTICALS-2020-000970

PATIENT
  Age: 13 Year
  Sex: Female

DRUGS (2)
  1. TRIKAFTA [Suspect]
     Active Substance: ELEXACAFTOR\IVACAFTOR\TEZACAFTOR
     Indication: Cystic fibrosis
     Dosage: BID
     Route: 048
     Dates: start: 20191220
  2. KITABIS PAK [Concomitant]
     Active Substance: TOBRAMYCIN
     Dosage: UNK
     Dates: start: 20180612, end: 20200115

REACTIONS (4)
  - Pseudomonas infection [Unknown]
  - Pulmonary function test decreased [Not Recovered/Not Resolved]
  - Pyrexia [Unknown]
  - Constipation [Unknown]

NARRATIVE: CASE EVENT DATE: 20191201
